FAERS Safety Report 9991985 (Version 1)
Quarter: 2014Q1

REPORT INFORMATION
  Report Type: Spontaneous
  Country: FR (occurrence: FR)
  Receive Date: 20140310
  Receipt Date: 20140310
  Transmission Date: 20141002
  Serious: Yes (Death)
  Sender: FDA-Public Use
  Company Number: FR-JNJFOC-20140301727

PATIENT
  Sex: 0

DRUGS (2)
  1. DORIPENEM [Suspect]
     Indication: PNEUMONIA
     Dosage: DURING A 4-H INFUSION
     Route: 042
  2. DORIPENEM [Suspect]
     Indication: PNEUMONIA
     Dosage: LOADING DOSE.
     Route: 042

REACTIONS (1)
  - Pneumonia [Fatal]
